FAERS Safety Report 9282813 (Version 1)
Quarter: 2013Q2

REPORT INFORMATION
  Report Type: Spontaneous
  Country: US (occurrence: None)
  Receive Date: 20130506
  Receipt Date: 20130506
  Transmission Date: 20140414
  Serious: Yes (Other)
  Sender: FDA-Public Use
  Company Number: FK201301403

PATIENT
  Age: 63 Year
  Sex: Female

DRUGS (2)
  1. OXALIPLATIN (MANUFACTURER UNKNOWN) (OXALIPLATIN) (OXALIPLATIN) [Suspect]
     Indication: OVARIAN CANCER
  2. DOXORUBICINE [Suspect]
     Indication: OVARIAN CANCER
     Dosage: CUMULATIVE DOSE

REACTIONS (7)
  - Renal failure chronic [None]
  - Hypertension [None]
  - Hydronephrosis [None]
  - Renal failure chronic [None]
  - Cardiac failure congestive [None]
  - Malignant neoplasm progression [None]
  - Ovarian cancer [None]
